FAERS Safety Report 14111141 (Version 1)
Quarter: 2017Q4

REPORT INFORMATION
  Report Type: Report from Study
  Country: JP (occurrence: JP)
  Receive Date: 20171020
  Receipt Date: 20171020
  Transmission Date: 20180321
  Serious: Yes (Other)
  Sender: FDA-Public Use
  Company Number: JP-PFIZER INC-2015238677

PATIENT
  Age: 43 Year
  Sex: Female
  Weight: 57 kg

DRUGS (10)
  1. SIROLIMUS. [Suspect]
     Active Substance: SIROLIMUS
     Dosage: 1 MG, 2X/WEEK
     Route: 048
     Dates: start: 20151120, end: 20160121
  2. SIROLIMUS. [Suspect]
     Active Substance: SIROLIMUS
     Indication: LYMPHANGIOLEIOMYOMATOSIS
     Dosage: 1 MG, 1X/DAY
     Route: 048
     Dates: start: 20150116, end: 20150212
  3. SIROLIMUS. [Suspect]
     Active Substance: SIROLIMUS
     Dosage: 1 MG, ALTERNATE DAY
     Route: 048
     Dates: start: 20150213, end: 20150219
  4. SIROLIMUS. [Suspect]
     Active Substance: SIROLIMUS
     Dosage: UNK
  5. AMBROXOL [Concomitant]
     Active Substance: AMBROXOL
     Dosage: UNK
     Route: 048
  6. AMLODIPINE [Concomitant]
     Active Substance: AMLODIPINE BESYLATE
     Dosage: 2.5 MG, 1X/DAY
     Route: 048
     Dates: start: 20150213
  7. SPIRIVA [Concomitant]
     Active Substance: TIOTROPIUM BROMIDE MONOHYDRATE
     Dosage: UNK
     Route: 055
  8. SIROLIMUS. [Suspect]
     Active Substance: SIROLIMUS
     Dosage: 1 MG, WEEKLY
     Route: 048
     Dates: start: 20150610, end: 20151119
  9. SIROLIMUS. [Suspect]
     Active Substance: SIROLIMUS
     Dosage: 1 MG, THREE TIMES A WEEK
     Route: 048
     Dates: start: 20160122
  10. AMLODIPINE [Concomitant]
     Active Substance: AMLODIPINE BESYLATE
     Indication: HYPERTENSION
     Dosage: 5 MG, 1X/DAY
     Route: 048
     Dates: start: 20140822, end: 20150212

REACTIONS (4)
  - Interstitial lung disease [Recovered/Resolved]
  - Pneumothorax [Recovered/Resolved]
  - Pneumonia [Recovered/Resolved]
  - Lung disorder [Recovered/Resolved]

NARRATIVE: CASE EVENT DATE: 20150129
